FAERS Safety Report 8286978-7 (Version None)
Quarter: 2012Q2

REPORT INFORMATION
  Report Type: 
  Country: None (occurrence: None)
  Receive Date: 20120416
  Receipt Date: 20120413
  Transmission Date: 20120825
  Serious: No
  Sender: FDA-Public Use
  Company Number: US-PFIZER INC-2012092866

PATIENT
  Sex: Male
  Weight: 86.2 kg

DRUGS (9)
  1. GEODON [Suspect]
     Dosage: 40 MG, 3X/DAY
     Route: 048
     Dates: end: 20120401
  2. GABAPENTIN [Concomitant]
     Dosage: 100 MG, 3X/DAY
     Route: 048
  3. GUANFACINE [Concomitant]
     Dosage: 1.5 MG, 2X/DAY
     Route: 048
  4. STRATTERA [Concomitant]
     Dosage: 60 MG, 1X/DAY
     Route: 048
  5. ATIVAN [Concomitant]
     Dosage: 0.5 MG, 1X/DAY
     Route: 048
  6. CLONIDINE [Concomitant]
     Dosage: 0.1 MG, 1X/DAY
  7. BENZTROPINE MESYLATE [Concomitant]
     Dosage: 0.5 MG, 2X/DAY
     Route: 048
  8. ZIPRASIDONE HCL [Suspect]
     Dosage: 40 MG, 3X/DAY
     Route: 048
     Dates: start: 20120401
  9. FLUVOXAMINE [Concomitant]
     Dosage: 100 MG, 3X/DAY
     Route: 048

REACTIONS (7)
  - OCULAR HYPERAEMIA [None]
  - BLOOD CHOLESTEROL DECREASED [None]
  - EYELID OEDEMA [None]
  - EYE PRURITUS [None]
  - EYE SWELLING [None]
  - VITAMIN D DECREASED [None]
  - ORAL PRURITUS [None]
